FAERS Safety Report 12905443 (Version 1)
Quarter: 2016Q4

REPORT INFORMATION
  Report Type: Spontaneous
  Country: US (occurrence: US)
  Receive Date: 20161103
  Receipt Date: 20161103
  Transmission Date: 20170207
  Serious: No
  Sender: FDA-Public Use
  Company Number: US-B.I. PHARMACEUTICALS,INC./RIDGEFIELD-2016-BI-068945

PATIENT
  Age: 71 Year
  Sex: Male

DRUGS (5)
  1. FAMOTIDINE AC [Concomitant]
     Indication: HYPERCHLORHYDRIA
     Dosage: ONE PILL QD;  FORM STRENGTH: 20MG
     Route: 048
  2. SPIRIVA [Suspect]
     Active Substance: TIOTROPIUM BROMIDE MONOHYDRATE
     Indication: CHRONIC OBSTRUCTIVE PULMONARY DISEASE
     Dosage: 2 INHALATIONS ON ONE CAPUSLE PER DAY;  FORM STRENGTH: 18 MCG; FORMULATION: CAPSULE? ADMINISTRATION C
     Route: 055
     Dates: start: 20160926
  3. ASPIRIN. [Concomitant]
     Active Substance: ASPIRIN
     Indication: MUSCLE SPASMS
     Dosage: ONE CAPLET QD;
     Route: 048
     Dates: start: 2015
  4. ATORVASTATIN [Concomitant]
     Active Substance: ATORVASTATIN
     Indication: BLOOD CHOLESTEROL INCREASED
     Dosage: 2 PILLS AT HS;  FORM STRENGTH: 40MG
     Route: 048
     Dates: start: 2015
  5. SENNA LAXATIVE [Concomitant]
     Active Substance: SENNOSIDES
     Indication: CONSTIPATION
     Dosage: QD AS NEEDED;  FORM STRENGTH: 8.6MG
     Route: 048
     Dates: start: 2015

REACTIONS (5)
  - Nasal congestion [Not Recovered/Not Resolved]
  - Epistaxis [Unknown]
  - Ocular hyperaemia [Not Recovered/Not Resolved]
  - Sneezing [Not Recovered/Not Resolved]
  - Lacrimation increased [Not Recovered/Not Resolved]

NARRATIVE: CASE EVENT DATE: 20160929
